FAERS Safety Report 13909561 (Version 2)
Quarter: 2017Q3

REPORT INFORMATION
  Report Type: Spontaneous
  Country: US (occurrence: US)
  Receive Date: 20170828
  Receipt Date: 20170927
  Transmission Date: 20171127
  Serious: Yes (Other)
  Sender: FDA-Public Use
  Company Number: US-PFIZER INC-2017370066

PATIENT
  Age: 82 Year
  Sex: Female

DRUGS (1)
  1. XELJANZ XR [Suspect]
     Active Substance: TOFACITINIB CITRATE
     Dosage: 11 MG, UNK
     Dates: start: 201707

REACTIONS (6)
  - Oropharyngeal pain [Unknown]
  - Rhinorrhoea [Unknown]
  - Nasal congestion [Unknown]
  - Drug ineffective [Unknown]
  - Nasopharyngitis [Unknown]
  - Cardiac failure congestive [Unknown]
